FAERS Safety Report 9939140 (Version 2)
Quarter: 2014Q1

REPORT INFORMATION
  Report Type: Report from Study
  Country: JP (occurrence: JP)
  Receive Date: 20140303
  Receipt Date: 20140313
  Transmission Date: 20141002
  Serious: Yes (Death)
  Sender: FDA-Public Use
  Company Number: JP-ASTELLAS-2014US002086

PATIENT
  Sex: Female

DRUGS (19)
  1. ERLOTINIB TABLET [Suspect]
     Indication: ADENOCARCINOMA PANCREAS
     Dosage: 100 MG, UID/QD
     Route: 048
     Dates: start: 20120831, end: 2013
  2. GEMCITABINE HYDROCHLORIDE [Concomitant]
     Indication: ADENOCARCINOMA PANCREAS
     Dosage: UNK
     Route: 042
     Dates: start: 20100122, end: 20120817
  3. GEMCITABINE HYDROCHLORIDE [Concomitant]
     Dosage: 1000 MG/M2, UID/QD
     Route: 041
     Dates: start: 20120831, end: 20120831
  4. GEMCITABINE HYDROCHLORIDE [Concomitant]
     Dosage: 750 MG/M2, UID/QD
     Route: 041
     Dates: start: 20120907, end: 20120907
  5. GEMCITABINE HYDROCHLORIDE [Concomitant]
     Dosage: 750 MG/M2, UID/QD
     Route: 041
     Dates: start: 20120928, end: 20120928
  6. GEMCITABINE HYDROCHLORIDE [Concomitant]
     Dosage: UNK
     Route: 041
     Dates: start: 20121015, end: 20121015
  7. GEMCITABINE HYDROCHLORIDE [Concomitant]
     Dosage: UNK
     Route: 041
     Dates: start: 20121029, end: 20121029
  8. GEMCITABINE HYDROCHLORIDE [Concomitant]
     Dosage: UNK
     Route: 041
     Dates: start: 20121112, end: 20121112
  9. GEMCITABINE HYDROCHLORIDE [Concomitant]
     Dosage: UNK
     Route: 041
     Dates: start: 20121126, end: 20121126
  10. GEMCITABINE HYDROCHLORIDE [Concomitant]
     Dosage: UNK
     Route: 041
     Dates: start: 20121214, end: 20121214
  11. GEMCITABINE HYDROCHLORIDE [Concomitant]
     Dosage: UNK
     Route: 041
     Dates: start: 20121221, end: 20121221
  12. GEMCITABINE HYDROCHLORIDE [Concomitant]
     Dosage: UNK
     Route: 041
     Dates: start: 20130111, end: 20130111
  13. GEMCITABINE HYDROCHLORIDE [Concomitant]
     Dosage: UNK
     Route: 041
     Dates: start: 20130125, end: 20130125
  14. GEMCITABINE HYDROCHLORIDE [Concomitant]
     Dosage: 750 MG/M2, UID/QD
     Route: 041
     Dates: start: 20130208, end: 20130208
  15. GEMCITABINE HYDROCHLORIDE [Concomitant]
     Dosage: 750 MG/M2, UID/QD
     Route: 041
     Dates: start: 20130222, end: 20130222
  16. GEMCITABINE HYDROCHLORIDE [Concomitant]
     Dosage: 750 MG/M2, UID/QD
     Route: 041
     Dates: start: 20130308, end: 20130308
  17. GEMCITABINE HYDROCHLORIDE [Concomitant]
     Dosage: 750 MG/M2, UID/QD
     Route: 041
     Dates: start: 20130315, end: 20130315
  18. GEMCITABINE HYDROCHLORIDE [Concomitant]
     Dosage: 750 MG/M2, UID/QD
     Route: 041
     Dates: start: 20130329, end: 20130329
  19. GEMCITABINE HYDROCHLORIDE [Concomitant]
     Dosage: 750 MG/M2, UNKNOWN/D
     Route: 041
     Dates: start: 20130408, end: 2013

REACTIONS (1)
  - Malignant neoplasm progression [Fatal]
